FAERS Safety Report 8920274 (Version 1)
Quarter: 2012Q4

REPORT INFORMATION
  Report Type: 
  Country: DE (occurrence: DE)
  Receive Date: 20121122
  Receipt Date: 20121122
  Transmission Date: 20130627
  Serious: Yes (Other)
  Sender: FDA-Public Use
  Company Number: PHHY2012DE105445

PATIENT
  Sex: Female

DRUGS (6)
  1. FAMVIR [Suspect]
     Indication: ANTIVIRAL PROPHYLAXIS
     Dosage: 500 mg, daily
     Route: 048
     Dates: start: 201211
  2. CYCLOPHOSPHAMIDE [Concomitant]
     Indication: VASCULITIS CEREBRAL
  3. DIFLUCAN [Concomitant]
  4. COTRIM FORTE [Concomitant]
  5. KATADOLON [Concomitant]
     Dosage: UNK
     Dates: start: 201211
  6. MUSARIL [Concomitant]
     Indication: PAIN MANAGEMENT
     Dosage: UNK
     Dates: start: 201211

REACTIONS (2)
  - Eczema [Not Recovered/Not Resolved]
  - Pruritus generalised [Not Recovered/Not Resolved]
